FAERS Safety Report 9768836 (Version 1)
Quarter: 2013Q4

REPORT INFORMATION
  Report Type: Report from Study
  Country: US (occurrence: US)
  Receive Date: 20131218
  Receipt Date: 20131218
  Transmission Date: 20140711
  Serious: Yes (Life-Threatening, Hospitalization)
  Sender: FDA-Public Use
  Company Number: US-BRISTOL-MYERS SQUIBB COMPANY-19904986

PATIENT
  Age: 65 Year
  Sex: Female

DRUGS (19)
  1. CARBOPLATIN [Suspect]
     Indication: NON-SMALL CELL LUNG CANCER
     Route: 042
     Dates: start: 20121001
  2. PACLITAXEL [Suspect]
     Indication: NON-SMALL CELL LUNG CANCER
     Route: 042
     Dates: start: 20131001
  3. NECITUMUMAB [Suspect]
     Indication: NON-SMALL CELL LUNG CANCER
     Route: 042
     Dates: start: 20131001
  4. NEXIUM [Concomitant]
     Dates: start: 201306
  5. FLONASE [Concomitant]
     Dates: start: 1983
  6. CALCIUM + VITAMIN D [Concomitant]
     Dates: start: 201112
  7. FISH OIL [Concomitant]
  8. GRAPESEED EXTRACT [Concomitant]
  9. TYLENOL [Concomitant]
  10. ADVAIR [Concomitant]
     Dates: start: 2010
  11. NEURONTIN [Concomitant]
     Dates: start: 2007
  12. BACLOFEN [Concomitant]
     Dates: start: 20130919
  13. PRAVASTATIN SODIUM [Concomitant]
     Dates: start: 201306
  14. PRO-AIR [Concomitant]
     Dates: start: 2010
  15. DENOSUMAB [Concomitant]
     Dates: start: 201112
  16. SPIRIVA [Concomitant]
     Dates: start: 2010
  17. VENLAFAXINE HCL [Concomitant]
     Dates: start: 201306
  18. XARELTO [Concomitant]
  19. DIOVAN [Concomitant]
     Dates: start: 201304

REACTIONS (1)
  - Sepsis [Not Recovered/Not Resolved]
